FAERS Safety Report 6027906-4 (Version None)
Quarter: 2008Q4

REPORT INFORMATION
  Report Type: 
  Country: None (occurrence: None)
  Receive Date: 20081230
  Receipt Date: 20081217
  Transmission Date: 20090506
  Serious: Yes (Other)
  Sender: FDA-Public Use
  Company Number: GXKR2008GB12074

PATIENT
  Age: 50 Year
  Sex: Female
  Weight: 78.5 kg

DRUGS (4)
  1. DOXYCYCLINE [Suspect]
     Indication: ROSACEA
     Dosage: 100 MG, QD, ORAL
     Route: 048
     Dates: start: 20051019, end: 20081101
  2. RANITIDINE [Suspect]
     Indication: DYSPEPSIA
     Dosage: 300 MG, QD, ORAL
     Route: 048
     Dates: start: 20080527, end: 20081101
  3. AMITRIPTYLINE HCL [Concomitant]
  4. LEVOTHYROXINE SODIUM [Concomitant]

REACTIONS (2)
  - ARTHRALGIA [None]
  - MYALGIA [None]
